FAERS Safety Report 16946699 (Version 2)
Quarter: 2020Q1

REPORT INFORMATION
  Report Type: Spontaneous
  Country: US (occurrence: US)
  Receive Date: 20191022
  Receipt Date: 20200217
  Transmission Date: 20200409
  Serious: Yes (Hospitalization, Other)
  Sender: FDA-Public Use
  Company Number: US-PFIZER INC-2019452133

PATIENT
  Age: 61 Year
  Sex: Female
  Weight: 69 kg

DRUGS (2)
  1. METHOTREXATE SODIUM. [Suspect]
     Active Substance: METHOTREXATE SODIUM
     Indication: RHEUMATOID ARTHRITIS
     Dosage: 2.5 MG, 1X/DAY
     Dates: start: 201505, end: 201707
  2. METHOTREXATE SODIUM. [Suspect]
     Active Substance: METHOTREXATE SODIUM
     Dosage: 3 DF (TABLET), WEEKLY

REACTIONS (3)
  - Drug intolerance [Recovered/Resolved]
  - Neoplasm malignant [Unknown]
  - Eczema [Unknown]

NARRATIVE: CASE EVENT DATE: 2015
